FAERS Safety Report 24620483 (Version 5)
Quarter: 2025Q3

REPORT INFORMATION
  Report Type: Spontaneous
  Country: PR (occurrence: PR)
  Receive Date: 20241114
  Receipt Date: 20250730
  Transmission Date: 20251021
  Serious: No
  Sender: BRISTOL-MYERS SQUIBB COMPANY
  Company Number: PR-BRISTOL-MYERS SQUIBB COMPANY-2024-178633

PATIENT
  Age: 62 Year
  Sex: Female
  Weight: 60.33 kg

DRUGS (5)
  1. REVLIMID [Suspect]
     Active Substance: LENALIDOMIDE
     Indication: Plasma cell myeloma
     Route: 048
     Dates: start: 20230904
  2. REVLIMID [Suspect]
     Active Substance: LENALIDOMIDE
     Route: 048
     Dates: start: 20230904
  3. REVLIMID [Suspect]
     Active Substance: LENALIDOMIDE
     Route: 048
     Dates: start: 20250317
  4. ACYCLOVIR [Suspect]
     Active Substance: ACYCLOVIR
     Indication: Product used for unknown indication
  5. DECADRON [Concomitant]
     Active Substance: DEXAMETHASONE
     Indication: Product used for unknown indication

REACTIONS (7)
  - Rash [Unknown]
  - Diarrhoea [Recovering/Resolving]
  - White blood cell count decreased [Not Recovered/Not Resolved]
  - Product dose omission issue [Unknown]
  - COVID-19 [Recovered/Resolved]
  - White blood cell count abnormal [Recovered/Resolved]
  - Platelet disorder [Recovered/Resolved]

NARRATIVE: CASE EVENT DATE: 20241114
